FAERS Safety Report 5225366-4 (Version None)
Quarter: 2007Q1

REPORT INFORMATION
  Report Type: 
  Country: None (occurrence: None)
  Receive Date: 20070131
  Receipt Date: 20070130
  Transmission Date: 20070707
  Serious: Yes (Hospitalization)
  Sender: FDA-Public Use
  Company Number: DE-BOEHRINGER INGELHEIM PHARMACEUTICALS, INC.-2007-DE-00117DE

PATIENT
  Sex: Male
  Weight: 86 kg

DRUGS (1)
  1. MICARDIS [Suspect]
     Route: 048

REACTIONS (3)
  - C-REACTIVE PROTEIN INCREASED [None]
  - INFLAMMATION [None]
  - PAIN IN EXTREMITY [None]
